FAERS Safety Report 26144704 (Version 3)
Quarter: 2025Q4

REPORT INFORMATION
  Report Type: Spontaneous
  Country: US (occurrence: US)
  Receive Date: 20251211
  Receipt Date: 20251218
  Transmission Date: 20260117
  Serious: Yes (Hospitalization, Other)
  Sender: ROCHE
  Company Number: US-ROCHE-10000452265

PATIENT
  Sex: Male

DRUGS (1)
  1. HEMLIBRA [Suspect]
     Active Substance: EMICIZUMAB-KXWH
     Indication: Factor VIII deficiency
     Dosage: STRENGTH: 300 MG/2ML AND 60 MG/0.4ML
     Route: 058
     Dates: start: 202512

REACTIONS (3)
  - Pneumonia [Unknown]
  - Haemarthrosis [Unknown]
  - Product prescribing issue [Unknown]
